FAERS Safety Report 7494007-8 (Version None)
Quarter: 2011Q2

REPORT INFORMATION
  Report Type: 
  Country: None (occurrence: None)
  Receive Date: 20110520
  Receipt Date: 20110516
  Transmission Date: 20111010
  Serious: No
  Sender: FDA-Public Use
  Company Number: US-PFIZER INC-US-WYE-H03778508

PATIENT
  Sex: Female
  Weight: 74 kg

DRUGS (1)
  1. PREMPRO [Suspect]
     Dosage: UNK,

REACTIONS (1)
  - BREAST MASS [None]
